FAERS Safety Report 10532831 (Version 3)
Quarter: 2014Q4

REPORT INFORMATION
  Report Type: Spontaneous
  Country: DE (occurrence: DE)
  Receive Date: 20141022
  Receipt Date: 20141116
  Transmission Date: 20150529
  Serious: Yes (Hospitalization)
  Sender: FDA-Public Use
  Company Number: DE-ROCHE-1478204

PATIENT
  Age: 61 Year
  Sex: Female
  Weight: 95 kg

DRUGS (3)
  1. XOLAIR [Suspect]
     Active Substance: OMALIZUMAB
     Indication: CHRONIC SPONTANEOUS URTICARIA
     Route: 065
     Dates: start: 20141007
  2. SOLU-DECORTIN-H [Concomitant]
     Active Substance: PREDNISOLONE HEMISUCCINATE
  3. FENISTIL (BRAZIL) [Concomitant]

REACTIONS (5)
  - Angioedema [Recovered/Resolved]
  - Eczema [Unknown]
  - Drug ineffective [Unknown]
  - Blood glucose increased [Not Recovered/Not Resolved]
  - Antinuclear antibody increased [Unknown]

NARRATIVE: CASE EVENT DATE: 20141009
